FAERS Safety Report 9251024 (Version 2)
Quarter: 2013Q4

REPORT INFORMATION
  Report Type: Spontaneous
  Country: US (occurrence: US)
  Receive Date: 20130424
  Receipt Date: 20131224
  Transmission Date: 20140711
  Serious: Yes (Hospitalization, Other)
  Sender: FDA-Public Use
  Company Number: US-ASTRAZENECA-2013SE27257

PATIENT
  Age: 52 Year
  Sex: Female
  Weight: 61.2 kg

DRUGS (17)
  1. NEXIUM [Suspect]
     Indication: GASTROOESOPHAGEAL REFLUX DISEASE
     Route: 048
     Dates: start: 20011010
  2. NEXIUM [Suspect]
     Indication: GASTROOESOPHAGEAL REFLUX DISEASE
     Route: 048
     Dates: start: 20011010
  3. NEXIUM [Suspect]
     Indication: GASTROOESOPHAGEAL REFLUX DISEASE
     Route: 048
     Dates: start: 200606, end: 2013
  4. NEXIUM [Suspect]
     Indication: GASTROOESOPHAGEAL REFLUX DISEASE
     Route: 048
     Dates: start: 200606, end: 2013
  5. PRILOSEC [Suspect]
     Indication: GASTROOESOPHAGEAL REFLUX DISEASE
     Route: 048
     Dates: start: 200111
  6. PRILOSEC [Suspect]
     Indication: GASTROOESOPHAGEAL REFLUX DISEASE
     Route: 048
     Dates: start: 200111
  7. PREVACID [Suspect]
     Indication: GASTROOESOPHAGEAL REFLUX DISEASE
     Route: 065
     Dates: start: 20010503
  8. PREVACID [Suspect]
     Indication: GASTROOESOPHAGEAL REFLUX DISEASE
     Route: 065
     Dates: start: 20010503
  9. PREDISONE [Suspect]
     Route: 065
  10. ALLEGRA [Concomitant]
  11. LORAZEPAM [Concomitant]
  12. EXCEDRAIN [Concomitant]
  13. LABETOL [Concomitant]
     Indication: BLOOD PRESSURE ABNORMAL
  14. ENABLEX [Concomitant]
     Indication: BLADDER DISORDER
  15. FLUCONAZOLE [Concomitant]
  16. HYDROCHLOROT [Concomitant]
  17. WELLBUTRIN [Concomitant]
     Dates: start: 20010606

REACTIONS (28)
  - Convulsion [Unknown]
  - Renal failure chronic [Unknown]
  - Osteoporosis [Unknown]
  - Bone disorder [Unknown]
  - Multiple fractures [Unknown]
  - Rotator cuff syndrome [Unknown]
  - Musculoskeletal stiffness [Unknown]
  - Arthropathy [Unknown]
  - Abasia [Unknown]
  - Nausea [Unknown]
  - Vomiting [Unknown]
  - Dizziness [Unknown]
  - Diarrhoea [Unknown]
  - Renal disorder [Unknown]
  - Anxiety [Unknown]
  - Stress [Unknown]
  - Depression [Unknown]
  - Poor quality sleep [Unknown]
  - Disturbance in attention [Unknown]
  - Angina pectoris [Unknown]
  - Calcium deficiency [Unknown]
  - Arthritis [Unknown]
  - Rheumatoid arthritis [Unknown]
  - Vitamin D deficiency [Unknown]
  - Bone density decreased [Unknown]
  - Fall [Unknown]
  - Osteopenia [Unknown]
  - Renal osteodystrophy [Unknown]
